FAERS Safety Report 10042619 (Version 3)
Quarter: 2014Q2

REPORT INFORMATION
  Report Type: Spontaneous
  Country: US (occurrence: US)
  Receive Date: 20140327
  Receipt Date: 20140612
  Transmission Date: 20141212
  Serious: Yes (Death)
  Sender: FDA-Public Use
  Company Number: US-TEVA-470644USA

PATIENT
  Sex: Male

DRUGS (4)
  1. ACTIQ [Suspect]
     Indication: PAIN
     Route: 048
  2. VOLTAREN GEL [Concomitant]
  3. DURAGESIC [Concomitant]
  4. MSIR [Concomitant]

REACTIONS (1)
  - Death [Fatal]
